FAERS Safety Report 4466288-6 (Version None)
Quarter: 2004Q3

REPORT INFORMATION
  Report Type: 
  Country: None (occurrence: None)
  Receive Date: 20040930
  Receipt Date: 20040921
  Transmission Date: 20050211
  Serious: Yes (Death)
  Sender: FDA-Public Use
  Company Number: 144-20785-04090568

PATIENT
  Sex: 0

DRUGS (3)
  1. THALIDOMIDE (THALIDOMIDE) (CAPSULES) [Suspect]
     Indication: MULTIPLE MYELOMA
     Dosage: 200 MG, INCREASED TO 400 MG, THEN INCREASED Q2WK FOR 4WK TO MAXIMUM DOSE OF 800 MG., QHS, ORAL
     Route: 048
  2. GENOXAL (CYCLOPHOSPHAMIDE) (UNKNOWN) [Suspect]
     Indication: MULTIPLE MYELOMA
     Dosage: 50 MG, QD, ORAL
     Route: 048
  3. FORTECORTIN (DEXAMETHASONE) (UNKNOWN) [Suspect]
     Indication: MULTIPLE MYELOMA
     Dosage: 40 MG, QD FOR 4D, Q3WK, ORAL
     Route: 048

REACTIONS (2)
  - ARRHYTHMIA [None]
  - SUDDEN DEATH [None]
